FAERS Safety Report 10697876 (Version 1)
Quarter: 2015Q1

REPORT INFORMATION
  Report Type: Report from Study
  Country: US (occurrence: US)
  Receive Date: 20150108
  Receipt Date: 20150108
  Transmission Date: 20150721
  Serious: Yes (Hospitalization)
  Sender: FDA-Public Use
  Company Number: US-ACTELION-A-NJ2014-110488

PATIENT
  Age: 59 Year
  Sex: Female

DRUGS (9)
  1. ALBUTEROL. [Concomitant]
     Active Substance: ALBUTEROL
     Dosage: UNK
  2. FOLIC ACID. [Concomitant]
     Active Substance: FOLIC ACID
     Dosage: UNK
  3. LASIX [Concomitant]
     Active Substance: FUROSEMIDE
     Dosage: UNK
  4. MORPHINE [Concomitant]
     Active Substance: MORPHINE
     Dosage: UNK
  5. WARFARIN [Concomitant]
     Active Substance: WARFARIN
     Dosage: UNK
  6. MECLIZINE [Concomitant]
     Active Substance: MECLIZINE\MECLIZINE HYDROCHLORIDE
     Dosage: UNK
  7. MACITENTAN [Suspect]
     Active Substance: MACITENTAN
     Indication: COR PULMONALE CHRONIC
     Dosage: 10 MG, QD
     Route: 048
     Dates: start: 20140728
  8. OMEPRAZOLE. [Concomitant]
     Active Substance: OMEPRAZOLE
     Dosage: UNK
  9. POTASSIUM [Concomitant]
     Active Substance: POTASSIUM
     Dosage: UNK

REACTIONS (1)
  - Sinusitis [Recovered/Resolved]

NARRATIVE: CASE EVENT DATE: 20141219
